FAERS Safety Report 26114180 (Version 1)
Quarter: 2025Q4

REPORT INFORMATION
  Report Type: Spontaneous
  Country: JP (occurrence: JP)
  Receive Date: 20251202
  Receipt Date: 20251202
  Transmission Date: 20260117
  Serious: Yes (Death, Other)
  Sender: PFIZER
  Company Number: JP-PFIZER INC-PV202500134685

PATIENT
  Age: 91 Year
  Sex: Male

DRUGS (1)
  1. FOSPHENYTOIN SODIUM [Suspect]
     Active Substance: FOSPHENYTOIN SODIUM
     Indication: Epilepsy
     Dosage: 300 MG
     Route: 042
     Dates: start: 20251030, end: 20251110

REACTIONS (2)
  - Thyroid cancer metastatic [Fatal]
  - Renal impairment [Unknown]

NARRATIVE: CASE EVENT DATE: 20251110
